FAERS Safety Report 24583747 (Version 3)
Quarter: 2025Q1

REPORT INFORMATION
  Report Type: Spontaneous
  Country: US (occurrence: US)
  Receive Date: 20241106
  Receipt Date: 20250102
  Transmission Date: 20250409
  Serious: No
  Sender: BRISTOL-MYERS SQUIBB COMPANY
  Company Number: US-BRISTOL-MYERS SQUIBB COMPANY-2024-173241

PATIENT
  Age: 94 Year
  Sex: Female

DRUGS (2)
  1. REVLIMID [Suspect]
     Active Substance: LENALIDOMIDE
     Indication: Myelodysplastic syndrome
     Route: 048
  2. REVLIMID [Suspect]
     Active Substance: LENALIDOMIDE
     Indication: 5q minus syndrome
     Dosage: FREQUENCY: OTHER/ QOWX21D
     Route: 048

REACTIONS (5)
  - Arthralgia [Unknown]
  - Pain in extremity [Unknown]
  - Product dose omission issue [Unknown]
  - Off label use [Unknown]
  - Dry skin [Unknown]
